FAERS Safety Report 5935908-9 (Version None)
Quarter: 2008Q4

REPORT INFORMATION
  Report Type: 
  Country: None (occurrence: None)
  Receive Date: 20081030
  Receipt Date: 20080319
  Transmission Date: 20090506
  Serious: No
  Sender: FDA-Public Use
  Company Number: A0716442A

PATIENT
  Age: 51 Year
  Sex: Female

DRUGS (1)
  1. IMITREX [Suspect]
     Indication: MIGRAINE
     Route: 045

REACTIONS (2)
  - NAUSEA [None]
  - VOMITING [None]
